FAERS Safety Report 7071059-0 (Version None)
Quarter: 2010Q4

REPORT INFORMATION
  Report Type: 
  Country: None (occurrence: None)
  Receive Date: 20101029
  Receipt Date: 20101021
  Transmission Date: 20110411
  Serious: No
  Sender: FDA-Public Use
  Company Number: US-PFIZER INC-2010134082

PATIENT

DRUGS (6)
  1. GEODON [Suspect]
     Dosage: 240 MG, UNK
  2. GEODON [Suspect]
     Dosage: 280 MG, UNK
  3. LITHIUM [Concomitant]
  4. MIRAPEX [Concomitant]
  5. SEROQUEL [Concomitant]
  6. PROVIGIL [Concomitant]

REACTIONS (1)
  - SEXUAL DYSFUNCTION [None]
